FAERS Safety Report 10041153 (Version 2)
Quarter: 2014Q2

REPORT INFORMATION
  Report Type: Spontaneous
  Country: DK (occurrence: NO)
  Receive Date: 20140327
  Receipt Date: 20140407
  Transmission Date: 20141212
  Serious: Yes (Hospitalization)
  Sender: FDA-Public Use
  Company Number: NO-FRI-1000065848

PATIENT
  Age: 78 Year
  Sex: Female
  Weight: 56 kg

DRUGS (6)
  1. ESCITALOPRAM [Suspect]
     Dosage: 20 MG
     Route: 048
  2. ESCITALOPRAM [Suspect]
     Dosage: 10 MG
     Route: 048
  3. ZYPREXA [Suspect]
     Indication: PSYCHOTIC DISORDER
     Dosage: 20 MG
     Route: 048
  4. NORSPAN [Concomitant]
     Indication: BACK PAIN
     Dosage: 240 MCG
  5. VALLERGAN [Concomitant]
     Dosage: 30 MG
     Route: 048
  6. ZOPICLONE ACTAVIS [Concomitant]
     Route: 048

REACTIONS (4)
  - Dizziness [Not Recovered/Not Resolved]
  - Syncope [Not Recovered/Not Resolved]
  - Executive dysfunction [Not Recovered/Not Resolved]
  - Delirium [Not Recovered/Not Resolved]
